FAERS Safety Report 16690667 (Version 1)
Quarter: 2019Q3

REPORT INFORMATION
  Report Type: Spontaneous
  Country: US (occurrence: US)
  Receive Date: 20190811
  Receipt Date: 20190811
  Transmission Date: 20191004
  Serious: No
  Sender: FDA-Public Use
  Company Number: US-009507513-1907USA014601

PATIENT
  Age: 68 Year
  Sex: Female

DRUGS (5)
  1. SULFAMETHOXAZOLE (+) TRIMETHOPRIM [Concomitant]
     Active Substance: SULFAMETHOXAZOLE\TRIMETHOPRIM
  2. ACYCLOVIR. [Concomitant]
     Active Substance: ACYCLOVIR
  3. PREDNISONE. [Concomitant]
     Active Substance: PREDNISONE
  4. PREVYMIS [Suspect]
     Active Substance: LETERMOVIR
     Indication: IMMUNE SYSTEM DISORDER
     Dosage: 480 MILLIGRAM(1 TABLET); DAILY(QD)
     Route: 048
     Dates: start: 20190712, end: 20190715
  5. FLUCONAZOLE. [Concomitant]
     Active Substance: FLUCONAZOLE

REACTIONS (2)
  - Abdominal pain [Recovered/Resolved]
  - Vomiting [Recovered/Resolved]

NARRATIVE: CASE EVENT DATE: 20190712
